FAERS Safety Report 9392720 (Version 3)
Quarter: 2013Q3

REPORT INFORMATION
  Report Type: Report from Study
  Country: FR (occurrence: FR)
  Receive Date: 20130710
  Receipt Date: 20130830
  Transmission Date: 20140515
  Serious: Yes (Death, Life-Threatening, Hospitalization)
  Sender: FDA-Public Use
  Company Number: FR-CELGENEUS-056-C4047-13070255

PATIENT
  Age: 63 Year
  Sex: Male
  Weight: 94 kg

DRUGS (8)
  1. CC-4047 [Suspect]
     Indication: PLASMA CELL MYELOMA
     Dosage: 4 MILLIGRAM
     Route: 048
     Dates: start: 20130611, end: 20130628
  2. DEXAMETHASONE [Suspect]
     Indication: PLASMA CELL MYELOMA
     Route: 065
     Dates: start: 20130611, end: 20130628
  3. ANTITHROMBOTIC AGENTS [Concomitant]
     Indication: THROMBOSIS PROPHYLAXIS
     Route: 065
  4. LYRICA [Concomitant]
     Indication: NEURALGIA
     Dosage: 150 MILLIGRAM
     Route: 048
  5. MONO TILDIEM [Concomitant]
     Indication: HYPERTENSION
     Dosage: 300 MILLIGRAM
     Route: 048
  6. ZELITREX [Concomitant]
     Indication: ANTIVIRAL PROPHYLAXIS
     Route: 048
  7. IMOVANE [Concomitant]
     Indication: INSOMNIA
     Dosage: 75 MILLIGRAM
     Route: 048
  8. VASTER [Concomitant]
     Indication: HYPERCHOLESTEROLAEMIA
     Dosage: 10 MILLIGRAM
     Route: 048

REACTIONS (1)
  - Staphylococcal sepsis [Fatal]
